FAERS Safety Report 6006903-9 (Version None)
Quarter: 2008Q4

REPORT INFORMATION
  Report Type: 
  Country: None (occurrence: None)
  Receive Date: 20081217
  Receipt Date: 20081210
  Transmission Date: 20090506
  Serious: Yes (Death, Other)
  Sender: FDA-Public Use
  Company Number: JP-BAYER-200812663BYL

PATIENT
  Age: 76 Year
  Sex: Male
  Weight: 52 kg

DRUGS (1)
  1. NEXAVAR [Suspect]
     Indication: RENAL CELL CARCINOMA STAGE IV
     Dosage: TOTAL DAILY DOSE: 800 MG  UNIT DOSE: 200 MG
     Route: 048
     Dates: start: 20080919, end: 20081028

REACTIONS (2)
  - INTERSTITIAL LUNG DISEASE [None]
  - PLEURAL EFFUSION [None]
